FAERS Safety Report 9700263 (Version 2)
Quarter: 2014Q1

REPORT INFORMATION
  Report Type: Report from Study
  Country: JP (occurrence: JP)
  Receive Date: 20131121
  Receipt Date: 20140106
  Transmission Date: 20141002
  Serious: Yes (Other)
  Sender: FDA-Public Use
  Company Number: JP-ROCHE-1306671

PATIENT
  Sex: 0

DRUGS (2)
  1. RITUXIMAB [Suspect]
     Indication: B-CELL UNCLASSIFIABLE LYMPHOMA LOW GRADE
     Dosage: FOR 8 WEEKS AS INDUCTION THERAPY
     Route: 065
  2. RITUXIMAB [Suspect]
     Dosage: MAINTENANCE THERAPY WITH 4 WEEKS OF RITUXIMAB AT SIX-MONTH INTERVALS
     Route: 065

REACTIONS (3)
  - Neutropenia [Unknown]
  - Alanine aminotransferase increased [Unknown]
  - Infection [Unknown]
